FAERS Safety Report 8576800-3 (Version None)
Quarter: 2012Q3

REPORT INFORMATION
  Report Type: 
  Country: None (occurrence: None)
  Receive Date: 20120807
  Receipt Date: 20120803
  Transmission Date: 20120928
  Serious: Yes (Hospitalization, Other)
  Sender: FDA-Public Use
  Company Number: AR-AMGEN-US299552

PATIENT
  Age: 48 Year
  Sex: Female

DRUGS (6)
  1. CALCIUM CARBONATE [Concomitant]
     Dosage: 1 G, BID
     Route: 048
     Dates: start: 20070420
  2. IRON [Concomitant]
     Dosage: UNK UNK, Q3WK
     Route: 042
     Dates: start: 20080728
  3. LEVOTHYROXINE SODIUM [Concomitant]
     Dosage: UNK UNK, QD
     Route: 048
     Dates: start: 20070212
  4. EPOGEN [Concomitant]
     Dosage: 2000 IU, QWK
     Route: 058
     Dates: start: 20080728
  5. CLONAZEPAM [Concomitant]
     Dosage: UNK UNK, QD
     Route: 048
     Dates: start: 20070212
  6. CINACALCET HYDROCHLORIDE [Suspect]
     Indication: HYPERPARATHYROIDISM SECONDARY
     Dosage: 90 MG, QD
     Route: 048
     Dates: start: 20070212

REACTIONS (1)
  - INTESTINAL INFARCTION [None]
